FAERS Safety Report 7333920-9 (Version None)
Quarter: 2011Q1

REPORT INFORMATION
  Report Type: 
  Country: None (occurrence: None)
  Receive Date: 20110307
  Receipt Date: 20110224
  Transmission Date: 20110831
  Serious: Yes (Hospitalization)
  Sender: FDA-Public Use
  Company Number: US-BIOGENIDEC-2011BI003958

PATIENT
  Age: 49 Year
  Sex: Female

DRUGS (3)
  1. AVONEX [Suspect]
     Indication: MULTIPLE SCLEROSIS
     Route: 030
     Dates: start: 20090301
  2. BACLOFEN [Concomitant]
  3. AVONEX [Suspect]
     Route: 030

REACTIONS (4)
  - VISION BLURRED [None]
  - HEADACHE [None]
  - DEVICE LEAKAGE [None]
  - DIZZINESS [None]
